FAERS Safety Report 7132091-1 (Version None)
Quarter: 2010Q4

REPORT INFORMATION
  Report Type: 
  Country: None (occurrence: None)
  Receive Date: 20101124
  Receipt Date: 20101124
  Transmission Date: 20110411
  Serious: Yes (Other)
  Sender: FDA-Public Use
  Company Number: None

PATIENT
  Sex: Female
  Weight: 70.5 kg

DRUGS (1)
  1. ASTELIN 137 MCG, MEDA PHARMACEUTICALS INC. [Suspect]
     Indication: HYPERSENSITIVITY
     Dosage: 1-2 PUFFS TWICE/DAY EACH NOSTRIL
     Route: 045
     Dates: start: 20090802, end: 20091127

REACTIONS (3)
  - CARDIAC FLUTTER [None]
  - HEART RATE INCREASED [None]
  - HEART RATE IRREGULAR [None]
